FAERS Safety Report 7739473-5 (Version None)
Quarter: 2011Q3

REPORT INFORMATION
  Report Type: 
  Country: None (occurrence: None)
  Receive Date: 20110909
  Receipt Date: 20110826
  Transmission Date: 20111222
  Serious: Yes (Hospitalization)
  Sender: FDA-Public Use
  Company Number: US-MYLANLABS-2011S1018201

PATIENT
  Age: 65 Year
  Sex: Male

DRUGS (11)
  1. GLIPIZIDE [Concomitant]
     Route: 065
  2. BENAZEPRIL HYDROCHLORIDE [Concomitant]
     Route: 065
  3. CALCIUM CARBONATE [Concomitant]
     Route: 065
  4. SIMVASTATIN [Concomitant]
     Route: 065
  5. LEVOTHYROXINE SODIUM [Concomitant]
     Route: 065
  6. PHENYTOIN [Concomitant]
     Route: 065
  7. HYDRALAZINE HCL [Concomitant]
     Route: 065
  8. ACYCLOVIR [Suspect]
     Indication: HERPES ZOSTER
     Dosage: 500MG OF 800MG-PILLS FIVE TIMES DAILY
     Route: 048
  9. ASPIRIN [Concomitant]
     Route: 065
  10. AMLODIPINE [Concomitant]
     Route: 065
  11. LASIX [Concomitant]
     Route: 065

REACTIONS (9)
  - DYSARTHRIA [None]
  - ATAXIA [None]
  - MENTAL STATUS CHANGES [None]
  - ABASIA [None]
  - NYSTAGMUS [None]
  - BLOOD PRESSURE INCREASED [None]
  - CONFUSIONAL STATE [None]
  - APHASIA [None]
  - TOXICITY TO VARIOUS AGENTS [None]
